FAERS Safety Report 23977371 (Version 1)
Quarter: 2024Q2

REPORT INFORMATION
  Report Type: Spontaneous
  Country: US (occurrence: None)
  Receive Date: 20240614
  Receipt Date: 20240614
  Transmission Date: 20240716
  Serious: Yes (Other)
  Sender: FDA-Public Use
  Company Number: None

PATIENT
  Age: 56 Year
  Sex: Female
  Weight: 63.9 kg

DRUGS (11)
  1. REPATHA [Suspect]
     Active Substance: EVOLOCUMAB
     Indication: Blood cholesterol increased
     Dosage: OTHER QUANTITY : 1 INJECTION(S)?OTHER FREQUENCY : INJECTION EVERY 2?OTHER ROUTE : INJECTION IN LEG?
     Route: 050
  2. FLUTICASONE [Concomitant]
     Active Substance: FLUTICASONE
  3. Proprionate [Concomitant]
  4. Aerosol [Concomitant]
  5. ALBUTEROL SULFATE [Concomitant]
     Active Substance: ALBUTEROL SULFATE
  6. Levithyroxine [Concomitant]
  7. SERTRALINE [Concomitant]
     Active Substance: SERTRALINE HYDROCHLORIDE
  8. MELOXICAM [Concomitant]
     Active Substance: MELOXICAM
  9. Lotradine [Concomitant]
  10. PRAVASTATIN [Concomitant]
     Active Substance: PRAVASTATIN
  11. VITAMINS [Concomitant]
     Active Substance: VITAMINS

REACTIONS (13)
  - Hot flush [None]
  - Headache [None]
  - Rhinorrhoea [None]
  - Cough [None]
  - Dysphonia [None]
  - Dyspnoea [None]
  - Hypoaesthesia [None]
  - Photosensitivity reaction [None]
  - Nasopharyngitis [None]
  - Palpitations [None]
  - Arthralgia [None]
  - Tinnitus [None]
  - Paraesthesia [None]

NARRATIVE: CASE EVENT DATE: 20240608
